FAERS Safety Report 21624089 (Version 1)
Quarter: 2022Q4

REPORT INFORMATION
  Report Type: Spontaneous
  Country: US (occurrence: US)
  Receive Date: 20221121
  Receipt Date: 20221121
  Transmission Date: 20230113
  Serious: Yes (Hospitalization)
  Sender: FDA-Public Use
  Company Number: US-ALLERGAN-2237953US

PATIENT
  Sex: Female
  Weight: 68.038 kg

DRUGS (2)
  1. MESALAMINE [Suspect]
     Active Substance: MESALAMINE
     Indication: Colitis ulcerative
     Dates: start: 2014
  2. MESALAMINE [Suspect]
     Active Substance: MESALAMINE
     Dosage: 6 PILLS AT ONE DOSING REGIMEN

REACTIONS (4)
  - Weight decreased [Unknown]
  - Colitis ulcerative [Unknown]
  - Incorrect dose administered [Unknown]
  - Drug ineffective [Unknown]
